FAERS Safety Report 6338298-5 (Version None)
Quarter: 2009Q3

REPORT INFORMATION
  Report Type: 
  Country: None (occurrence: None)
  Receive Date: 20090902
  Receipt Date: 20090827
  Transmission Date: 20100115
  Serious: Yes (Hospitalization)
  Sender: FDA-Public Use
  Company Number: AU-ABBOTT-09P-008-0593609-00

PATIENT
  Sex: Female
  Weight: 126 kg

DRUGS (4)
  1. REDUCTIL 10MG [Suspect]
     Indication: OBESITY
     Dosage: DAILY
     Dates: end: 20081111
  2. BREVINOR-1 [Suspect]
     Indication: DRUG USE FOR UNKNOWN INDICATION
     Dates: end: 20081111
  3. MOBIC [Suspect]
     Indication: PAIN
     Dosage: DAILY
     Dates: end: 20081111
  4. NULYTELY [Concomitant]
     Indication: DRUG USE FOR UNKNOWN INDICATION

REACTIONS (1)
  - HEPATITIS [None]
